FAERS Safety Report 21670352 (Version 1)
Quarter: 2022Q4

REPORT INFORMATION
  Report Type: Spontaneous
  Country: US (occurrence: US)
  Receive Date: 20221201
  Receipt Date: 20221201
  Transmission Date: 20230113
  Serious: Yes (Other)
  Sender: FDA-Public Use
  Company Number: US-TEVA-2022-US-2830636

PATIENT

DRUGS (1)
  1. DEXTROAMPHET SACCHARAT, AMPHET ASPARTATE, DEXTROAMPHET SULFATE AND AMP [Suspect]
     Active Substance: AMPHETAMINE ASPARTATE\AMPHETAMINE SULFATE\DEXTROAMPHETAMINE SACCHARATE\DEXTROAMPHETAMINE SULFATE
     Indication: Attention deficit hyperactivity disorder
     Route: 065

REACTIONS (10)
  - Cardiovascular insufficiency [Unknown]
  - Heart rate increased [Unknown]
  - Hypertension [Unknown]
  - Dyspnoea [Unknown]
  - Fatigue [Unknown]
  - Increased appetite [Unknown]
  - Apathy [Unknown]
  - Mood swings [Unknown]
  - Anhedonia [Unknown]
  - Drug ineffective [Unknown]
